FAERS Safety Report 4708882-0 (Version None)
Quarter: 2005Q3

REPORT INFORMATION
  Report Type: 
  Country: None (occurrence: None)
  Receive Date: 20050705
  Receipt Date: 20050620
  Transmission Date: 20060218
  Serious: Yes (Death, Congenital Anomaly, Other)
  Sender: FDA-Public Use
  Company Number: 2005FR-00053

PATIENT
  Age: 1 Day
  Weight: 8 kg

DRUGS (1)
  1. FLUOXETINE [Suspect]
     Dosage: 20 MG, TRANSPLACENTAL
     Route: 064

REACTIONS (3)
  - ANTERIOR CHAMBER CLEAVAGE SYNDROME [None]
  - CONGENITAL MULTIPLEX ARTHROGRYPOSIS [None]
  - DRUG EXPOSURE DURING PREGNANCY [None]
